FAERS Safety Report 12906199 (Version 1)
Quarter: 2016Q4

REPORT INFORMATION
  Report Type: Spontaneous
  Country: US (occurrence: US)
  Receive Date: 20161102
  Receipt Date: 20161102
  Transmission Date: 20170207
  Serious: Yes (Disabling)
  Sender: FDA-Public Use
  Company Number: None

PATIENT

DRUGS (1)
  1. ATORVASTATIN CALCIUM MYLAN [Suspect]
     Active Substance: ATORVASTATIN CALCIUM
     Indication: BLOOD CHOLESTEROL INCREASED
     Route: 048
     Dates: start: 20090820, end: 20160829

REACTIONS (4)
  - Myalgia [None]
  - Tendon pain [None]
  - Bone pain [None]
  - Tremor [None]

NARRATIVE: CASE EVENT DATE: 20160404
